FAERS Safety Report 12011660 (Version 1)
Quarter: 2016Q1

REPORT INFORMATION
  Report Type: Spontaneous
  Country: US (occurrence: US)
  Receive Date: 20160205
  Receipt Date: 20160205
  Transmission Date: 20160526
  Serious: Yes (Other)
  Sender: FDA-Public Use
  Company Number: US-SAGENTPRD-2016-US-000001

PATIENT
  Age: 37 Year
  Sex: Male
  Weight: 125 kg

DRUGS (9)
  1. DEXAMETHASONE. [Concomitant]
     Active Substance: DEXAMETHASONE
     Dates: start: 20160129, end: 20160129
  2. GLYCOPYRROLATE. [Concomitant]
     Active Substance: GLYCOPYRROLATE
     Dates: start: 20160129, end: 20160129
  3. LACTATED RINGERS [Concomitant]
     Active Substance: CALCIUM CHLORIDE\POTASSIUM CHLORIDE\SODIUM CHLORIDE\SODIUM LACTATE
     Dates: start: 20160129, end: 20160129
  4. PROPOFOL. [Concomitant]
     Active Substance: PROPOFOL
     Dates: start: 20160129, end: 20160129
  5. ROCURONIUM BROMIDE INJECTION, 100 MG/10 ML [Suspect]
     Active Substance: ROCURONIUM BROMIDE
     Dosage: DOSE NOT STATED
     Route: 042
     Dates: start: 20160129, end: 20160129
  6. CEFAZOLIN [Concomitant]
     Active Substance: CEFAZOLIN
     Dates: start: 20160129, end: 20160129
  7. KETOROLAC [Concomitant]
     Active Substance: KETOROLAC\KETOROLAC TROMETHAMINE
     Dates: start: 20160129, end: 20160129
  8. NEOMYCIN/POLYMYXIN IRRIGATION [Concomitant]
     Dates: start: 20160129, end: 20160129
  9. MIDAZOLAM [Concomitant]
     Active Substance: MIDAZOLAM\MIDAZOLAM HYDROCHLORIDE
     Dates: start: 20160129, end: 20160129

REACTIONS (1)
  - Drug ineffective [Unknown]

NARRATIVE: CASE EVENT DATE: 20160129
